FAERS Safety Report 7744937-4 (Version None)
Quarter: 2011Q3

REPORT INFORMATION
  Report Type: 
  Country: None (occurrence: None)
  Receive Date: 20110913
  Receipt Date: 20110902
  Transmission Date: 20111222
  Serious: Yes (Hospitalization)
  Sender: FDA-Public Use
  Company Number: IN-BIOGENIDEC-2011BI028998

PATIENT
  Age: 42 Year
  Sex: Female

DRUGS (1)
  1. AVONEX [Suspect]
     Indication: MULTIPLE SCLEROSIS
     Route: 030
     Dates: start: 20110629, end: 20110726

REACTIONS (7)
  - COMA [None]
  - LIP DISORDER [None]
  - DYSPNOEA [None]
  - CENTRAL PAIN SYNDROME [None]
  - DRY SKIN [None]
  - DRY MOUTH [None]
  - THIRST [None]
